FAERS Safety Report 6271377-X (Version None)
Quarter: 2009Q3

REPORT INFORMATION
  Report Type: 
  Country: None (occurrence: None)
  Receive Date: 20090717
  Receipt Date: 20090708
  Transmission Date: 20100115
  Serious: Yes (Other)
  Sender: FDA-Public Use
  Company Number: US-ROCHE-640990

PATIENT
  Sex: Female
  Weight: 56.2 kg

DRUGS (1)
  1. BONIVA [Suspect]
     Indication: OSTEOPOROSIS
     Dosage: DOSE: 3 MG/3ML; 1ST AND LAST DOSE
     Route: 042
     Dates: start: 20080930, end: 20080930

REACTIONS (1)
  - IRITIS [None]
